FAERS Safety Report 4778602-2 (Version None)
Quarter: 2005Q3

REPORT INFORMATION
  Report Type: 
  Country: None (occurrence: None)
  Receive Date: 20050922
  Receipt Date: 20050909
  Transmission Date: 20060218
  Serious: Yes (Other)
  Sender: FDA-Public Use
  Company Number: 2005126493

PATIENT
  Age: 68 Year
  Sex: Male

DRUGS (3)
  1. XALATAN [Suspect]
     Indication: INTRAOCULAR PRESSURE INCREASED
     Dosage: TWO DROPS DAILY, OPHTHALMIC
     Route: 047
  2. AVANDAMET (METFORMIN HYDROCHLORIDE, ROSIGLITAZONE) [Concomitant]
  3. SIMVASTATIN [Concomitant]

REACTIONS (2)
  - EYE INFECTION [None]
  - PHARMACEUTICAL PRODUCT COMPLAINT [None]
